FAERS Safety Report 6367608-8 (Version None)
Quarter: 2009Q3

REPORT INFORMATION
  Report Type: 
  Country: None (occurrence: None)
  Receive Date: 20090909
  Receipt Date: 20090624
  Transmission Date: 20100115
  Serious: Yes (Other)
  Sender: FDA-Public Use
  Company Number: E-09-220

PATIENT
  Sex: Female

DRUGS (1)
  1. SPIRONOLACTONE [Suspect]
     Indication: SKIN DISORDER
     Dosage: TT TABS P.O. B.I.D.
     Route: 048

REACTIONS (1)
  - HYPONATRAEMIA [None]
